FAERS Safety Report 10354996 (Version 2)
Quarter: 2014Q3

REPORT INFORMATION
  Report Type: Report from Study
  Country: US (occurrence: US)
  Receive Date: 20140731
  Receipt Date: 20140826
  Transmission Date: 20150326
  Serious: Yes (Death)
  Sender: FDA-Public Use
  Company Number: US-TAKEDA-2014MPI002054

PATIENT
  Age: 23 Year
  Sex: Female

DRUGS (12)
  1. METHOTREXATE [Concomitant]
     Active Substance: METHOTREXATE
  2. CYCLOPHOSPHAMIDE. [Concomitant]
     Active Substance: CYCLOPHOSPHAMIDE
  3. VELCADE [Suspect]
     Active Substance: BORTEZOMIB
     Indication: BURKITT^S LYMPHOMA
     Dosage: 2 MG, UNK
     Route: 058
  4. CODOX                              /00055703/ [Concomitant]
  5. RITUXAN [Concomitant]
     Active Substance: RITUXIMAB
  6. ETOPOSIDE. [Concomitant]
     Active Substance: ETOPOSIDE
  7. CARBOPLATIN. [Concomitant]
     Active Substance: CARBOPLATIN
  8. DOXORUBICIN [Concomitant]
     Active Substance: DOXORUBICIN
  9. CYTARABIN [Concomitant]
     Active Substance: CYTARABINE
  10. IFOSFAMIDE. [Concomitant]
     Active Substance: IFOSFAMIDE
  11. VINCRISTINE [Concomitant]
     Active Substance: VINCRISTINE
  12. PREDNISONE. [Concomitant]
     Active Substance: PREDNISONE

REACTIONS (5)
  - Alopecia [Unknown]
  - Death [Fatal]
  - Off label use [Unknown]
  - Dizziness [Unknown]
  - Fatigue [Unknown]

NARRATIVE: CASE EVENT DATE: 20140131
